FAERS Safety Report 4869371-6 (Version None)
Quarter: 2005Q4

REPORT INFORMATION
  Report Type: 
  Country: None (occurrence: None)
  Receive Date: 20051230
  Receipt Date: 20051109
  Transmission Date: 20060501
  Serious: Yes (Other)
  Sender: FDA-Public Use
  Company Number: US-AVENTIS-200519167US

PATIENT
  Sex: Female

DRUGS (1)
  1. LANTUS [Suspect]
     Dosage: DOSE: NOT PROVIDED

REACTIONS (3)
  - LOSS OF CONSCIOUSNESS [None]
  - PHARMACEUTICAL PRODUCT COMPLAINT [None]
  - POOR QUALITY DRUG ADMINISTERED [None]
